FAERS Safety Report 10578365 (Version 2)
Quarter: 2014Q4

REPORT INFORMATION
  Report Type: Spontaneous
  Country: BR (occurrence: BR)
  Receive Date: 20141112
  Receipt Date: 20141201
  Transmission Date: 20150529
  Serious: Yes (Death, Hospitalization, Other)
  Sender: FDA-Public Use
  Company Number: PHHY2014BR142911

PATIENT
  Age: 53 Year
  Sex: Female

DRUGS (1)
  1. EVEROLIMUS [Suspect]
     Active Substance: EVEROLIMUS
     Indication: BREAST CANCER
     Route: 065

REACTIONS (6)
  - Pneumonitis [Unknown]
  - Oesophageal ulcer [Unknown]
  - Large intestinal ulcer [Unknown]
  - Upper gastrointestinal haemorrhage [Unknown]
  - Stomatitis [Unknown]
  - Death [Fatal]
